FAERS Safety Report 24168273 (Version 2)
Quarter: 2024Q3

REPORT INFORMATION
  Report Type: Spontaneous
  Country: US (occurrence: US)
  Receive Date: 20240802
  Receipt Date: 20240830
  Transmission Date: 20241017
  Serious: Yes (Other)
  Sender: BRISTOL MYERS SQUIBB
  Company Number: US-BRISTOL-MYERS SQUIBB COMPANY-2024-121558

PATIENT
  Age: 70 Year
  Sex: Female
  Weight: 119.75 kg

DRUGS (1)
  1. REVLIMID [Suspect]
     Active Substance: LENALIDOMIDE
     Indication: Plasma cell myeloma
     Dosage: 14D OF 21D CYCLE
     Route: 048
     Dates: start: 20240201

REACTIONS (3)
  - Intestinal obstruction [Not Recovered/Not Resolved]
  - Off label use [Unknown]
  - Cataract [Recovering/Resolving]
